FAERS Safety Report 6986376-X (Version None)
Quarter: 2010Q3

REPORT INFORMATION
  Report Type: 
  Country: None (occurrence: None)
  Receive Date: 20100910
  Receipt Date: 20100903
  Transmission Date: 20110219
  Serious: Yes (Other)
  Sender: FDA-Public Use
  Company Number: 004035

PATIENT
  Sex: Female

DRUGS (4)
  1. VIMPAT [Suspect]
     Indication: EPILEPSY
     Dosage: (200 DAILY), (100 DAILY)
     Dates: start: 20090701, end: 20091223
  2. VIMPAT [Suspect]
     Indication: EPILEPSY
     Dosage: (200 DAILY), (100 DAILY)
     Dates: start: 20091223, end: 20100125
  3. VIMPAT [Suspect]
     Indication: EPILEPSY
     Dosage: (200 DAILY), (100 DAILY)
     Dates: start: 20100125
  4. LAMOTRIGINE [Suspect]
     Indication: EPILEPSY
     Dosage: (700 DAILY)

REACTIONS (4)
  - CAESAREAN SECTION [None]
  - DRUG EXPOSURE DURING PREGNANCY [None]
  - EPILEPSY [None]
  - PREGNANCY [None]
